FAERS Safety Report 9345339 (Version 1)
Quarter: 2013Q2

REPORT INFORMATION
  Report Type: Spontaneous
  Country: PT (occurrence: PT)
  Receive Date: 20130613
  Receipt Date: 20130613
  Transmission Date: 20140414
  Serious: Yes (Death)
  Sender: FDA-Public Use
  Company Number: PT-B.I. PHARMACEUTICALS,INC./RIDGEFIELD-2013-BI-16523PO

PATIENT
  Age: 84 Year
  Sex: Female

DRUGS (2)
  1. PRADAXA [Suspect]
  2. CONCOMITANT MEDICATIONS NOT SPECIFIED [Concomitant]

REACTIONS (3)
  - Rectal haemorrhage [Fatal]
  - Shock [Fatal]
  - Multi-organ failure [Fatal]
